FAERS Safety Report 11847644 (Version 1)
Quarter: 2015Q4

REPORT INFORMATION
  Report Type: Spontaneous
  Country: US (occurrence: US)
  Receive Date: 20151217
  Receipt Date: 20151217
  Transmission Date: 20160305
  Serious: Yes (Hospitalization)
  Sender: FDA-Public Use
  Company Number: US-PURDUE PHARMA-USA-2015-0120806

PATIENT
  Sex: Female

DRUGS (2)
  1. DILAUDID [Suspect]
     Active Substance: HYDROMORPHONE HYDROCHLORIDE
     Dosage: UNK
     Route: 048
     Dates: start: 2003
  2. DILAUDID [Suspect]
     Active Substance: HYDROMORPHONE HYDROCHLORIDE
     Indication: PAIN
     Dosage: 1 TO 2 TABLET, Q4- 6H
     Route: 048

REACTIONS (6)
  - Drug effect incomplete [Unknown]
  - Abdominal adhesions [Unknown]
  - Abdominal pain [Unknown]
  - Vomiting [Unknown]
  - Pelvic pain [Unknown]
  - Pain [Unknown]
